FAERS Safety Report 22648118 (Version 1)
Quarter: 2023Q2

REPORT INFORMATION
  Report Type: Report from Study
  Country: GB (occurrence: GB)
  Receive Date: 20230628
  Receipt Date: 20230628
  Transmission Date: 20230721
  Serious: Yes (Hospitalization, Other)
  Sender: FDA-Public Use
  Company Number: GB-TAKEDA-GB201409362

PATIENT
  Age: 54 Year
  Sex: Female
  Weight: 118 kg

DRUGS (39)
  1. VELAGLUCERASE ALFA [Suspect]
     Active Substance: VELAGLUCERASE ALFA
     Indication: Gaucher^s disease
     Dosage: 14.7 INTERNATIONAL UNIT/KILOGRAM, Q2WEEKS
     Route: 041
     Dates: start: 20130916, end: 201707
  2. VELAGLUCERASE ALFA [Suspect]
     Active Substance: VELAGLUCERASE ALFA
     Dosage: 30 INTERNATIONAL UNIT/KILOGRAM, Q2WEEKS
     Route: 041
     Dates: start: 201707
  3. RANITIDINE HYDROCHLORIDE [Concomitant]
     Active Substance: RANITIDINE HYDROCHLORIDE
     Indication: Gastrointestinal disorder
     Dosage: UNK UNK, QID
     Route: 048
     Dates: end: 2016
  4. AMITRIPTYLINE [Concomitant]
     Active Substance: AMITRIPTYLINE
     Indication: Depression
     Dosage: 25 MILLIGRAM, QD
     Route: 048
  5. SYMBICORT [Concomitant]
     Active Substance: BUDESONIDE\FORMOTEROL FUMARATE DIHYDRATE
     Indication: Respiratory disorder
     Dosage: UNK UNK, BID
     Route: 055
     Dates: end: 2016
  6. SYMBICORT [Concomitant]
     Active Substance: BUDESONIDE\FORMOTEROL FUMARATE DIHYDRATE
     Dosage: 2 DOSAGE FORM, BID
     Route: 055
     Dates: start: 201412
  7. CARBOCYSTEINE [Concomitant]
     Active Substance: CARBOCYSTEINE
     Indication: Respiratory disorder
     Dosage: 375 MILLIGRAM, BID
     Route: 048
  8. AMOXICILLIN\CLAVULANATE POTASSIUM [Concomitant]
     Active Substance: AMOXICILLIN\CLAVULANATE POTASSIUM
     Indication: Infection
     Dosage: UNK UNK, BID
     Route: 048
     Dates: end: 2016
  9. VITAMIN D [Concomitant]
     Active Substance: VITAMIN D NOS
     Indication: Vitamin supplementation
     Dosage: UNK
     Route: 048
     Dates: end: 2016
  10. ESTRADIOL [Concomitant]
     Active Substance: ESTRADIOL
     Indication: Menopause
     Dosage: UNK
     Route: 067
     Dates: end: 2016
  11. DOXYCYCLINE [Concomitant]
     Active Substance: DOXYCYCLINE
     Indication: Infection
     Dosage: 100 MILLIGRAM, QD
     Route: 048
  12. CIPROFLOXACIN [Concomitant]
     Active Substance: CIPROFLOXACIN
     Indication: Infection
     Route: 048
  13. METOCLOPRAMIDE [Concomitant]
     Active Substance: METOCLOPRAMIDE
     Indication: Gastrointestinal disorder
     Dosage: 10 MILLIGRAM
     Route: 048
  14. ALBUTEROL [Concomitant]
     Active Substance: ALBUTEROL
     Indication: Respiratory disorder
     Dosage: 2.5 MILLIGRAM
     Route: 055
  15. ALBUTEROL [Concomitant]
     Active Substance: ALBUTEROL
     Indication: Asthma
     Dosage: UNK UNK, QID
     Route: 055
     Dates: start: 20151223
  16. LOSARTAN [Concomitant]
     Active Substance: LOSARTAN
     Indication: Cardiovascular disorder
     Dosage: 50 MILLIGRAM, QD
     Route: 048
     Dates: start: 20141209
  17. MIRTAZAPINE [Concomitant]
     Active Substance: MIRTAZAPINE
     Indication: Depression
     Dosage: 30 MILLIGRAM, QD
     Route: 048
     Dates: start: 20141209, end: 20160803
  18. PENICILLIN V [Concomitant]
     Active Substance: PENICILLIN V
     Indication: Prophylaxis
     Dosage: UNK UNK, BID
     Route: 048
     Dates: start: 20141209, end: 20160803
  19. MORPHINE SULFATE [Concomitant]
     Active Substance: MORPHINE SULFATE
     Indication: Pain
     Dosage: 5 MILLIGRAM, Q4HR
     Route: 048
     Dates: start: 20141209, end: 20160803
  20. MORPHINE SULFATE [Concomitant]
     Active Substance: MORPHINE SULFATE
     Dosage: 10 MILLIGRAM, QD
     Route: 048
     Dates: start: 20160803, end: 20160804
  21. MORPHINE SULFATE [Concomitant]
     Active Substance: MORPHINE SULFATE
     Dosage: 25 MILLIGRAM, QD
     Route: 048
     Dates: start: 20180804, end: 20180918
  22. LANSOPRAZOLE [Concomitant]
     Active Substance: LANSOPRAZOLE
     Indication: Gastrointestinal disorder
     Dosage: 30 MILLIGRAM, BID
     Route: 048
     Dates: start: 20150120
  23. MONTELUKAST [Concomitant]
     Active Substance: MONTELUKAST SODIUM
     Indication: Respiratory disorder
     Dosage: 10 MILLIGRAM, QD
     Route: 048
     Dates: start: 20150120, end: 20160803
  24. TIOTROPIUM [Concomitant]
     Active Substance: TIOTROPIUM
     Indication: Respiratory disorder
     Dosage: UNK UNK, QD
     Route: 055
     Dates: start: 20150123, end: 2016
  25. FERROUS FUMARATE [Concomitant]
     Active Substance: FERROUS FUMARATE
     Indication: Supplementation therapy
     Dosage: 322 MILLIGRAM, BID
     Route: 048
     Dates: start: 2016, end: 2016
  26. CHOLECALCIFEROL [Concomitant]
     Active Substance: CHOLECALCIFEROL
     Indication: Hypovitaminosis
     Dosage: 20000 INTERNATIONAL UNIT, QD
     Route: 048
     Dates: start: 2016
  27. FOLIC ACID [Concomitant]
     Active Substance: FOLIC ACID
     Indication: Supplementation therapy
     Dosage: 5 MILLIGRAM, QD
     Route: 048
     Dates: start: 20160803, end: 20180918
  28. GABAPENTIN [Concomitant]
     Active Substance: GABAPENTIN
     Indication: Pain
     Dosage: 600 MILLIGRAM, BID
     Route: 048
     Dates: start: 20160803
  29. AZITHROMYCIN [Concomitant]
     Active Substance: AZITHROMYCIN
     Indication: Lower respiratory tract infection
     Dosage: 500 MILLIGRAM, 3/WEEK
     Dates: start: 20160803
  30. VAGIFEM [Concomitant]
     Active Substance: ESTRADIOL
     Indication: Menopause
     Dosage: UNK UNK, 2/WEEK
     Route: 050
     Dates: start: 20160803, end: 20180918
  31. FLUTICASONE FUROATE [Concomitant]
     Active Substance: FLUTICASONE FUROATE
     Indication: Hypersensitivity
     Dosage: UNK UNK, QD
     Route: 045
     Dates: start: 20160803, end: 20180918
  32. AMINOPHYLLINE [Concomitant]
     Active Substance: AMINOPHYLLINE
     Indication: Respiratory disorder
     Dosage: 225 MILLIGRAM, BID
     Route: 048
     Dates: start: 20160804, end: 20160804
  33. ZOLEDRONIC ACID [Concomitant]
     Active Substance: ZOLEDRONIC ACID
     Indication: Bone density abnormal
     Dosage: 2 MILLIGRAM, SINGLE
     Route: 042
     Dates: start: 20161213, end: 20161213
  34. OXYCONTIN [Concomitant]
     Active Substance: OXYCODONE HYDROCHLORIDE
     Indication: Analgesic therapy
     Dosage: 50 MILLIGRAM
     Route: 048
     Dates: start: 2017
  35. OXYCODONE HYDROCHLORIDE [Concomitant]
     Active Substance: OXYCODONE HYDROCHLORIDE
     Indication: Pain
     Dosage: UNK UNK, QID
     Route: 048
     Dates: start: 2017
  36. FLUCLOXACILLIN [Concomitant]
     Active Substance: FLUCLOXACILLIN
     Indication: Cellulitis
     Dosage: 500 MILLIGRAM, QID
     Route: 048
     Dates: start: 20170623, end: 20170630
  37. FYBOGEL [Concomitant]
     Active Substance: HERBALS\PLANTAGO OVATA SEED
     Indication: Constipation
     Dosage: UNK
     Route: 048
     Dates: start: 201707
  38. MOVICOL [Concomitant]
     Active Substance: POLYETHYLENE GLYCOL 3350\POTASSIUM CHLORIDE\SODIUM BICARBONATE\SODIUM CHLORIDE
     Indication: Constipation
     Dosage: UNK
     Route: 048
     Dates: start: 201707
  39. DOCUSATE SODIUM [Concomitant]
     Active Substance: DOCUSATE SODIUM
     Indication: Constipation
     Dosage: UNK
     Route: 048
     Dates: start: 201707

REACTIONS (2)
  - Pneumonia klebsiella [Recovered/Resolved]
  - Asthma [Recovered/Resolved]

NARRATIVE: CASE EVENT DATE: 20140721
